FAERS Safety Report 9068457 (Version 1)
Quarter: 2013Q1

REPORT INFORMATION
  Report Type: Spontaneous
  Country: CA (occurrence: CA)
  Receive Date: 20130206
  Receipt Date: 20130206
  Transmission Date: 20140127
  Serious: Yes (Other)
  Sender: FDA-Public Use
  Company Number: CA-ELI_LILLY_AND_COMPANY-CA201301009150

PATIENT
  Age: 65 Year
  Sex: Male

DRUGS (6)
  1. FORTEO [Suspect]
     Indication: OSTEOPOROSIS
     Dosage: 20 UG, QD
     Route: 058
     Dates: start: 20120404
  2. SEREVENT [Concomitant]
  3. FLOVENT [Concomitant]
  4. SPIRIVA [Concomitant]
  5. SIMVASTATIN [Concomitant]
  6. CODEINE [Concomitant]

REACTIONS (1)
  - Circulatory collapse [Not Recovered/Not Resolved]
